FAERS Safety Report 12289503 (Version 1)
Quarter: 2016Q2

REPORT INFORMATION
  Report Type: Spontaneous
  Country: US (occurrence: None)
  Receive Date: 20160420
  Receipt Date: 20160420
  Transmission Date: 20160815
  Serious: Yes (Disabling, Other)
  Sender: FDA-Public Use
  Company Number: None

PATIENT
  Age: 74 Year
  Sex: Male
  Weight: 77.11 kg

DRUGS (10)
  1. AMITRIPTYLINE HCL [Concomitant]
     Active Substance: AMITRIPTYLINE
  2. RITE AID ALLERGY PILLS [Concomitant]
  3. VERAPAMIL ER [Concomitant]
     Active Substance: VERAPAMIL HYDROCHLORIDE
  4. TEMAZEPAM. [Concomitant]
     Active Substance: TEMAZEPAM
  5. STOOL SOFNER [Concomitant]
  6. LAXIVE [Concomitant]
  7. ACETAMINOPHEN\HYDROCODONE BITARTRATE [Concomitant]
     Active Substance: ACETAMINOPHEN\HYDROCODONE BITARTRATE
  8. OMEPRAZOLE DR 40MG CAPSULE GENERIC FOR PRILOSEC [Suspect]
     Active Substance: OMEPRAZOLE
     Indication: GASTROOESOPHAGEAL REFLUX DISEASE
     Route: 048
     Dates: start: 20140411
  9. HYDRALAZINE [Concomitant]
     Active Substance: HYDRALAZINE HYDROCHLORIDE
  10. LOW DOSE ASPIRIN [Concomitant]
     Active Substance: ASPIRIN

REACTIONS (18)
  - Tremor [None]
  - Pruritus [None]
  - Nerve injury [None]
  - Muscle spasms [None]
  - Myalgia [None]
  - Haemorrhage [None]
  - Arthralgia [None]
  - Fall [None]
  - Joint injury [None]
  - Pain in extremity [None]
  - Tendon pain [None]
  - Arthritis [None]
  - Dyskinesia [None]
  - Musculoskeletal disorder [None]
  - Infrequent bowel movements [None]
  - Pain [None]
  - Gastrointestinal disorder [None]
  - Seizure [None]

NARRATIVE: CASE EVENT DATE: 20140411
